FAERS Safety Report 19524569 (Version 4)
Quarter: 2021Q3

REPORT INFORMATION
  Report Type: Report from Study
  Country: US (occurrence: US)
  Receive Date: 20210712
  Receipt Date: 20210907
  Transmission Date: 20211014
  Serious: No
  Sender: FDA-Public Use
  Company Number: NVSC2021US145927

PATIENT
  Age: 41 Year
  Sex: Female

DRUGS (2)
  1. COSENTYX [Suspect]
     Active Substance: SECUKINUMAB
     Dosage: 150 MG, QMO(Q FOUR WEEKS,SUBCUTANEOUS ? BENEATH THE SKIN)
     Route: 058
     Dates: start: 20210528
  2. COSENTYX [Suspect]
     Active Substance: SECUKINUMAB
     Indication: AXIAL SPONDYLOARTHRITIS
     Dosage: 150 MG, QW(Q WEEK FOR FIVE WEEKS, SUBCUTANEOUS ? BENEATH THE SKIN)
     Route: 058
     Dates: start: 20210528

REACTIONS (4)
  - Dysstasia [Unknown]
  - Musculoskeletal pain [Unknown]
  - Fatigue [Unknown]
  - Arthralgia [Unknown]

NARRATIVE: CASE EVENT DATE: 20210528
